FAERS Safety Report 8026907-4 (Version None)
Quarter: 2011Q4

REPORT INFORMATION
  Report Type: 
  Country: None (occurrence: None)
  Receive Date: 20111130
  Receipt Date: 20110707
  Transmission Date: 20120403
  Serious: Yes (Other)
  Sender: FDA-Public Use
  Company Number: US201107002479

PATIENT
  Sex: Male

DRUGS (1)
  1. BYETTA [Suspect]
     Dates: start: 20080227, end: 20080527

REACTIONS (1)
  - PANCREATITIS [None]
